FAERS Safety Report 19660727 (Version 2)
Quarter: 2021Q3

REPORT INFORMATION
  Report Type: Spontaneous
  Country: JP (occurrence: JP)
  Receive Date: 20210805
  Receipt Date: 20210916
  Transmission Date: 20211014
  Serious: Yes (Death, Life-Threatening)
  Sender: FDA-Public Use
  Company Number: JP-ELI_LILLY_AND_COMPANY-JP202108001980

PATIENT
  Age: 83 Year
  Sex: Female
  Weight: 42 kg

DRUGS (10)
  1. FAMOTIDINE. [Concomitant]
     Active Substance: FAMOTIDINE
     Dosage: UNK
     Route: 041
     Dates: start: 20210610, end: 20210627
  2. SIVELESTAT NA [Concomitant]
     Dosage: UNK
     Route: 041
     Dates: start: 20210610, end: 20210623
  3. MIDAZOLAM. [Concomitant]
     Active Substance: MIDAZOLAM
     Dosage: UNK
     Dates: start: 20210610, end: 20210627
  4. INOVAN [DOPAMINE HYDROCHLORIDE] [Concomitant]
     Dosage: UNK
     Dates: start: 20210612, end: 20210627
  5. HEPARIN SODIUM. [Concomitant]
     Active Substance: HEPARIN SODIUM
     Dosage: UNK
     Dates: start: 20210610, end: 20210627
  6. OLUMIANT [Suspect]
     Active Substance: BARICITINIB
     Indication: COVID-19 PNEUMONIA
     Dosage: 4 MG, DAILY
     Route: 050
     Dates: start: 20210610, end: 20210616
  7. FENTANYL. [Concomitant]
     Active Substance: FENTANYL
     Dosage: UNK
     Dates: start: 20210610, end: 20210627
  8. TAZOPIPE [Concomitant]
     Active Substance: PIPERACILLIN SODIUM\TAZOBACTAM SODIUM
     Dosage: UNK
     Route: 041
     Dates: start: 20210612, end: 20210619
  9. BAYASPIRIN [Concomitant]
     Active Substance: ASPIRIN
     Route: 048
  10. SIMVASTATIN. [Concomitant]
     Active Substance: SIMVASTATIN
     Route: 048

REACTIONS (3)
  - Cytopenia [Recovered/Resolved]
  - General physical health deterioration [Fatal]
  - Renal impairment [Unknown]

NARRATIVE: CASE EVENT DATE: 20210612
